FAERS Safety Report 6061322-4 (Version None)
Quarter: 2009Q1

REPORT INFORMATION
  Report Type: 
  Country: None (occurrence: None)
  Receive Date: 20090202
  Receipt Date: 20090122
  Transmission Date: 20090719
  Serious: Yes (Other)
  Sender: FDA-Public Use
  Company Number: DE-JNJFOC-20090105658

PATIENT
  Age: 15 Year
  Sex: Female
  Weight: 55 kg

DRUGS (7)
  1. REMICADE [Suspect]
     Route: 042
  2. REMICADE [Suspect]
     Route: 042
  3. REMICADE [Suspect]
     Dosage: DOSE 6
     Route: 042
  4. REMICADE [Suspect]
     Dosage: DOSES 2 THROUGH 5 (DATES NOT SPECIFIED)
     Route: 042
  5. REMICADE [Suspect]
     Indication: CROHN'S DISEASE
     Route: 042
  6. SALOFALK [Suspect]
     Indication: CROHN'S DISEASE
  7. HUMIRA [Suspect]
     Indication: CROHN'S DISEASE
     Route: 058

REACTIONS (4)
  - BLOOD IMMUNOGLOBULIN G INCREASED [None]
  - DRUG INEFFECTIVE [None]
  - HYPERTENSION [None]
  - PROTEINURIA [None]
